FAERS Safety Report 7337823-5 (Version None)
Quarter: 2011Q1

REPORT INFORMATION
  Report Type: 
  Country: None (occurrence: None)
  Receive Date: 20110303
  Receipt Date: 20110303
  Transmission Date: 20110831
  Serious: Yes (Hospitalization)
  Sender: FDA-Public Use
  Company Number: None

PATIENT
  Age: 67 Year
  Sex: Male
  Weight: 105 kg

DRUGS (1)
  1. DABIGATRAN -PRADAXA- 150 MG BOEHRINGER-INGLEHEIM [Suspect]
     Indication: ATRIAL FIBRILLATION
     Dosage: 150 MG BID PO
     Route: 048
     Dates: start: 20110216, end: 20110223

REACTIONS (3)
  - HAEMORRHAGE INTRACRANIAL [None]
  - ATRIAL FIBRILLATION [None]
  - SPEECH DISORDER [None]
